FAERS Safety Report 24376646 (Version 12)
Quarter: 2025Q1

REPORT INFORMATION
  Report Type: Spontaneous
  Country: US (occurrence: US)
  Receive Date: 20240930
  Receipt Date: 20250113
  Transmission Date: 20250409
  Serious: No
  Sender: PFIZER
  Company Number: US-PFIZER INC-PV202400126726

PATIENT
  Age: 78 Year
  Sex: Female
  Weight: 58.957 kg

DRUGS (2)
  1. PREMARIN [Suspect]
     Active Substance: ESTROGENS, CONJUGATED
     Route: 061
  2. PREMARIN [Suspect]
     Active Substance: ESTROGENS, CONJUGATED

REACTIONS (6)
  - Emotional disorder [Recovering/Resolving]
  - Malaise [Recovering/Resolving]
  - Mental disorder [Recovered/Resolved]
  - Post-traumatic stress disorder [Unknown]
  - Hypertension [Unknown]
  - Off label use [Unknown]

NARRATIVE: CASE EVENT DATE: 20240901
